FAERS Safety Report 16154358 (Version 2)
Quarter: 2019Q2

REPORT INFORMATION
  Report Type: Report from Study
  Country: US (occurrence: US)
  Receive Date: 20190403
  Receipt Date: 20190406
  Transmission Date: 20190711
  Serious: Yes (Death)
  Sender: FDA-Public Use
  Company Number: US-ROCHE-2282992

PATIENT
  Age: 88 Year
  Sex: Male

DRUGS (4)
  1. DOXYCYL [Concomitant]
     Active Substance: DOXYCYCLINE HYDROCHLORIDE
  2. ERIVEDGE [Suspect]
     Active Substance: VISMODEGIB
     Indication: BASAL CELL CARCINOMA
     Dosage: ONGOING: UNKNOWN
     Route: 048
     Dates: start: 20190117
  3. CEPHALEXIN. [Concomitant]
     Active Substance: CEPHALEXIN
  4. PROVENTIL [Concomitant]
     Active Substance: ALBUTEROL

REACTIONS (1)
  - Death [Fatal]

NARRATIVE: CASE EVENT DATE: 20190303
